FAERS Safety Report 9056794 (Version 1)
Quarter: 2013Q1

REPORT INFORMATION
  Report Type: Spontaneous
  Country: DE (occurrence: DE)
  Receive Date: 20130201
  Receipt Date: 20130201
  Transmission Date: 20140127
  Serious: Yes (Death, Life-Threatening, Hospitalization, Disabling, Other)
  Sender: FDA-Public Use
  Company Number: DE-BAYER-2012-073237

PATIENT
  Age: 86 Year
  Sex: Female
  Weight: 78 kg

DRUGS (3)
  1. XARELTO [Suspect]
     Indication: CEREBROVASCULAR ACCIDENT PROPHYLAXIS
     Dosage: 15 MG, UNK
     Route: 048
     Dates: start: 20120523, end: 20120716
  2. XARELTO [Interacting]
     Indication: ATRIAL FIBRILLATION
  3. ASS [Interacting]
     Indication: ANTICOAGULANT THERAPY
     Dosage: 100 MG, QD
     Route: 048

REACTIONS (5)
  - Subdural haematoma [None]
  - Fall [None]
  - Hemiparesis [None]
  - Somnolence [None]
  - Drug interaction [None]
